FAERS Safety Report 4345815-3 (Version None)
Quarter: 2004Q2

REPORT INFORMATION
  Report Type: 
  Country: None (occurrence: None)
  Receive Date: 20040424
  Receipt Date: 20030731
  Transmission Date: 20050107
  Serious: Yes (Hospitalization, Other)
  Sender: FDA-Public Use
  Company Number: GB-MERCK-0308GBR00019

PATIENT
  Age: 67 Year
  Sex: Male
  Weight: 47 kg

DRUGS (13)
  1. ASPIRIN [Concomitant]
     Route: 065
  2. FLOXACILLIN [Concomitant]
     Indication: LOCALISED INFECTION
     Route: 065
     Dates: start: 20021024, end: 20021127
  3. FUSIDATE SODIUM [Suspect]
     Route: 065
  4. FUSIDIC ACID [Concomitant]
     Indication: LOCALISED INFECTION
     Route: 065
     Dates: start: 20021024, end: 20021127
  5. INSULIN, BIPHASIC ISOPHANE [INJECTION] [Concomitant]
     Route: 065
  6. METFORMIN [Concomitant]
     Route: 065
     Dates: end: 20021127
  7. PENICILLIN V [Concomitant]
     Indication: LOCALISED INFECTION
     Route: 065
     Dates: start: 20021024, end: 20021127
  8. PERINDOPRIL [Concomitant]
     Route: 065
     Dates: end: 20021127
  9. ZOCOR [Suspect]
     Indication: HYPERCHOLESTEROLAEMIA
     Route: 048
     Dates: start: 20000101, end: 20020101
  10. ZOCOR [Suspect]
     Route: 048
     Dates: start: 20020101, end: 20021127
  11. ZOCOR [Suspect]
     Indication: DIABETES MELLITUS
     Route: 048
     Dates: start: 20000101, end: 20020101
  12. ZOCOR [Suspect]
     Route: 048
     Dates: start: 20020101, end: 20021127
  13. TIMOLOL [Concomitant]
     Route: 065

REACTIONS (3)
  - DRUG INTERACTION [None]
  - RENAL FAILURE [None]
  - RHABDOMYOLYSIS [None]
